FAERS Safety Report 5511044-0 (Version None)
Quarter: 2007Q4

REPORT INFORMATION
  Report Type: 
  Country: None (occurrence: None)
  Receive Date: 20071101
  Receipt Date: 20071018
  Transmission Date: 20080405
  Serious: Yes (Other)
  Sender: FDA-Public Use
  Company Number: THYM-11576

PATIENT
  Age: 1 Year
  Sex: Male
  Weight: 10.5 kg

DRUGS (15)
  1. THYMOGLOBULIN [Suspect]
     Indication: INTESTINAL TRANSPLANT
     Dosage: 20 MG QD IV
     Route: 042
     Dates: start: 20070928, end: 20070929
  2. THYMOGLOBULIN [Suspect]
     Indication: LIVER TRANSPLANT
     Dosage: 20 MG QD IV
     Route: 042
     Dates: start: 20070928, end: 20070929
  3. THYMOGLOBULIN [Suspect]
     Indication: PANCREAS TRANSPLANT
     Dosage: 20 MG QD IV
     Route: 042
     Dates: start: 20070928, end: 20070929
  4. THYMOGLOBULIN [Suspect]
     Indication: INTESTINE TRANSPLANT REJECTION
     Dosage: 2 MG/KG QD IV
     Route: 042
     Dates: start: 20071014, end: 20071018
  5. THYMOGLOBULIN [Suspect]
     Indication: LIVER TRANSPLANT REJECTION
     Dosage: 2 MG/KG QD IV
     Route: 042
     Dates: start: 20071014, end: 20071018
  6. THYMOGLOBULIN [Suspect]
     Indication: PANCREAS TRANSPLANT REJECTION
     Dosage: 2 MG/KG QD IV
     Route: 042
     Dates: start: 20071014, end: 20071018
  7. THYMOGLOBULIN [Suspect]
     Indication: INTESTINE TRANSPLANT REJECTION
     Dosage: 6.5 MG/KG QD IV
     Route: 042
     Dates: start: 20071018
  8. THYMOGLOBULIN [Suspect]
     Indication: LIVER TRANSPLANT REJECTION
     Dosage: 6.5 MG/KG QD IV
     Route: 042
     Dates: start: 20071018
  9. THYMOGLOBULIN [Suspect]
     Indication: PANCREAS TRANSPLANT REJECTION
     Dosage: 6.5 MG/KG QD IV
     Route: 042
     Dates: start: 20071018
  10. TACROLIMUS [Concomitant]
  11. METHYLPREDNISOLONE [Concomitant]
  12. GANCICLOVIR [Concomitant]
  13. MEROPENEM [Concomitant]
  14. AMPOTERICIN B LIPID [Concomitant]
  15. TRIMETHOPRIM + SULFAMETHOXAZOLE [Concomitant]

REACTIONS (4)
  - DRUG INEFFECTIVE [None]
  - ESCHERICHIA INFECTION [None]
  - INTESTINE TRANSPLANT REJECTION [None]
  - LIVER AND PANCREAS TRANSPLANT REJECTION [None]
